FAERS Safety Report 5022779-0 (Version None)
Quarter: 2006Q2

REPORT INFORMATION
  Report Type: 
  Country: None (occurrence: None)
  Receive Date: 20060609
  Receipt Date: 20060605
  Transmission Date: 20061013
  Serious: Yes (Hospitalization)
  Sender: FDA-Public Use
  Company Number: US-MERCK-0606USA00728

PATIENT
  Age: 65 Year
  Sex: Female

DRUGS (3)
  1. FOSAMAX [Suspect]
     Indication: OSTEOPOROSIS
     Route: 048
     Dates: start: 20030101
  2. LIPITOR [Concomitant]
     Route: 065
  3. AVANDIA [Concomitant]
     Route: 065

REACTIONS (1)
  - TOOTH LOSS [None]
